FAERS Safety Report 19670423 (Version 1)
Quarter: 2021Q3

REPORT INFORMATION
  Report Type: Report from Study
  Country: US (occurrence: US)
  Receive Date: 20210806
  Receipt Date: 20210806
  Transmission Date: 20211014
  Serious: Yes (Other)
  Sender: FDA-Public Use
  Company Number: US-SAOL THERAPEUTICS-2021SAO00146

PATIENT
  Age: 64 Year
  Sex: Female
  Weight: 56 kg

DRUGS (3)
  1. LIORESAL [Suspect]
     Active Substance: BACLOFEN
     Indication: SPINAL OSTEOARTHRITIS
     Dosage: UNK
  2. CARBIDOPA?LEVODOPA [Concomitant]
     Active Substance: CARBIDOPA\LEVODOPA
  3. BACLOFEN. [Concomitant]
     Active Substance: BACLOFEN

REACTIONS (7)
  - Cerebrospinal fluid leakage [Recovered/Resolved]
  - Implant site swelling [Unknown]
  - Parkinson^s disease [Unknown]
  - Complication associated with device [Unknown]
  - Off label use [Unknown]
  - Dyskinesia [Recovered/Resolved]
  - Implant site erythema [Unknown]

NARRATIVE: CASE EVENT DATE: 20161103
